FAERS Safety Report 10524408 (Version 1)
Quarter: 2014Q4

REPORT INFORMATION
  Report Type: Spontaneous
  Country: DE (occurrence: None)
  Receive Date: 20141015
  Receipt Date: 20141015
  Transmission Date: 20150528
  Serious: Yes (Life-Threatening, Disabling, Other)
  Sender: FDA-Public Use
  Company Number: None

PATIENT
  Age: 32 Year
  Sex: Male
  Weight: 74 kg

DRUGS (2)
  1. FINASTERIDE. [Suspect]
     Active Substance: FINASTERIDE
     Indication: ALOPECIA
     Route: 048
     Dates: start: 20111031, end: 20120922
  2. FINASTERIDE. [Suspect]
     Active Substance: FINASTERIDE
     Indication: PRURITUS
     Route: 048
     Dates: start: 20111031, end: 20120922

REACTIONS (13)
  - Suicidal ideation [None]
  - Fatigue [None]
  - Erectile dysfunction [None]
  - Nervousness [None]
  - Muscle twitching [None]
  - Anxiety [None]
  - Sexual dysfunction [None]
  - Depression [None]
  - Asthenia [None]
  - Libido disorder [None]
  - Testicular pain [None]
  - Ejaculation disorder [None]
  - Breast pain [None]

NARRATIVE: CASE EVENT DATE: 20120922
